FAERS Safety Report 19132235 (Version 2)
Quarter: 2021Q2

REPORT INFORMATION
  Report Type: Report from Study
  Country: US (occurrence: US)
  Receive Date: 20210414
  Receipt Date: 20210514
  Transmission Date: 20210717
  Serious: Yes (Hospitalization)
  Sender: FDA-Public Use
  Company Number: US-BAUSCH-BL-2021-013311

PATIENT
  Age: 58 Year
  Sex: Male
  Weight: 55.21 kg

DRUGS (1)
  1. XIFAXAN [Suspect]
     Active Substance: RIFAXIMIN
     Indication: HEPATIC ENCEPHALOPATHY
     Route: 065

REACTIONS (1)
  - Gastrostomy [Unknown]
